FAERS Safety Report 5443008-X (Version None)
Quarter: 2007Q3

REPORT INFORMATION
  Report Type: 
  Country: None (occurrence: None)
  Receive Date: 20070905
  Receipt Date: 20070829
  Transmission Date: 20080115
  Serious: Yes (Hospitalization, Other)
  Sender: FDA-Public Use
  Company Number: PHBS2007JP13287

PATIENT
  Age: 80 Year
  Sex: Male

DRUGS (10)
  1. ZOMETA [Suspect]
     Indication: BONE LESION
     Dosage: 4 MG EVERY 4 WEEKS
     Route: 042
     Dates: start: 20070508
  2. ALKERAN [Concomitant]
     Dosage: 4 DF/DAY
     Route: 048
     Dates: start: 20030101, end: 20070710
  3. PREDONINE [Concomitant]
     Dosage: 6 DF/DAY
     Route: 048
     Dates: start: 20030101, end: 20070710
  4. FAMOTIDINE [Concomitant]
     Route: 048
  5. LOXONIN [Concomitant]
     Route: 048
  6. SELBEX [Concomitant]
     Route: 048
  7. TERNELIN [Concomitant]
     Route: 048
  8. VITAMEDIN CAPSULE [Concomitant]
     Route: 048
  9. FOLIAMIN [Concomitant]
     Route: 048
  10. BUP-4 [Concomitant]
     Route: 048

REACTIONS (6)
  - ANAEMIA [None]
  - BONE DEBRIDEMENT [None]
  - BONE DISORDER [None]
  - LOOSE TOOTH [None]
  - OSTEOMYELITIS [None]
  - PARALYSIS [None]
